FAERS Safety Report 8609609-2 (Version None)
Quarter: 2012Q3

REPORT INFORMATION
  Report Type: 
  Country: None (occurrence: None)
  Receive Date: 20120821
  Receipt Date: 20120806
  Transmission Date: 20120928
  Serious: Yes (Other)
  Sender: FDA-Public Use
  Company Number: CZ-WATSON-2012-14510

PATIENT
  Sex: Female

DRUGS (5)
  1. PREDNISONE TAB [Suspect]
     Indication: PEMPHIGUS
     Dosage: 90 MG, DAILY
     Route: 048
  2. METHYLPREDNISOLONE [Suspect]
     Indication: PEMPHIGUS
     Dosage: 72 MG, DAILY
     Route: 048
  3. DEXAMETHASONE TAB [Suspect]
     Indication: PEMPHIGUS
     Dosage: 3 MG, DAILY
     Route: 048
  4. CYCLOPHOSPHAMIDE [Suspect]
     Indication: PEMPHIGUS
     Dosage: 100 MG, DAILY
     Route: 048
  5. AZATHIOPRINE [Suspect]
     Indication: PEMPHIGUS
     Dosage: 100 MG, DAILY
     Route: 048

REACTIONS (6)
  - MOOD SWINGS [None]
  - WEIGHT INCREASED [None]
  - SLEEP DISORDER [None]
  - WITHDRAWAL SYNDROME [None]
  - HYPERLIPIDAEMIA [None]
  - HYPERGLYCAEMIA [None]
